FAERS Safety Report 5225413-X (Version None)
Quarter: 2007Q1

REPORT INFORMATION
  Report Type: 
  Country: None (occurrence: None)
  Receive Date: 20070131
  Receipt Date: 20070119
  Transmission Date: 20070707
  Serious: Yes (Life-Threatening, Hospitalization)
  Sender: FDA-Public Use
  Company Number: SE-PFIZER INC-2007006806

PATIENT
  Sex: Male
  Weight: 116.6 kg

DRUGS (7)
  1. SOMAVERT [Suspect]
     Indication: ACROMEGALY
     Dosage: DAILY DOSE:15MG-FREQ:DAILY
  2. SOMAVERT [Suspect]
     Dosage: DAILY DOSE:20MG-FREQ:DAILY
  3. HYDROCORTISONE [Concomitant]
  4. LEVOTHYROXINE SODIUM [Concomitant]
  5. TESTOSTERONE [Concomitant]
  6. HYDROCHLOROTHIAZIDE [Concomitant]
  7. GLUCOSAMINE [Concomitant]

REACTIONS (1)
  - PULMONARY EMBOLISM [None]
